FAERS Safety Report 8617182 (Version 3)
Quarter: 2012Q4

REPORT INFORMATION
  Report Type: 
  Country: US (occurrence: US)
  Receive Date: 20120615
  Receipt Date: 20121231
  Transmission Date: 20130627
  Serious: Yes (Hospitalization)
  Sender: FDA-Public Use
  Company Number: US-PFIZER INC-2012136575

PATIENT
  Age: 10 Year
  Sex: Male
  Weight: 49.6 kg

DRUGS (7)
  1. TEMSIROLIMUS [Suspect]
     Indication: PRECURSOR B-LYMPHOBLASTIC LEUKEMIA ACUTE
     Dosage: 7.5 mg/m2, over 30 minutes on days 1, 8 and 15 (Max dose: 15 mg)
     Route: 042
     Dates: start: 20120511, end: 20120518
  2. DEXAMETHASONE SODIUM PHOSPHATE [Suspect]
     Indication: B PRECURSOR TYPE ACUTE LEUKAEMIA
     Dosage: 10 mg/m2/ dose PO BID or IV on days 1-5 and 15-19.
     Dates: start: 20120511, end: 20120516
  3. METHOTREXATE SODIUM [Suspect]
     Indication: PRECURSOR B-LYMPHOBLASTIC LEUKAEMIA ACUTE
     Dosage: 8-15mg (age based dosing) IT on days 1 (or up to 72 hours prior to day 1) and 8
     Route: 037
     Dates: start: 20120511, end: 20120518
  4. PEG-ASPARAGINASE [Suspect]
     Indication: B PRECURSOR TYPE ACUTE LEUKAEMIA
     Dosage: 2500 IU/m2, over 1 hour on days 3 and 17 or ((if allergic to Pegaspargase use Erwinia Asparaginase)
     Route: 042
     Dates: start: 20120511, end: 20120514
  5. VINCRISTINE SULFATE [Suspect]
     Indication: B PRECURSOR TYPE ACUTE LEUKAEMIA
     Dosage: 1.5 mg/m2 (max 2 mg), push over 1-5 minutes or infusion via minibag on days 1,8,15,22.
     Route: 042
     Dates: start: 20120511, end: 20120518
  6. MITOXANTRONE HYDROCHLORIDE [Suspect]
     Indication: B PRECURSOR TYPE ACUTE LEUKAEMIA
     Dosage: 10 mg/m2 IV over 30 minutes on Days 1 and 2, and
     Route: 042
     Dates: start: 20120511, end: 20120513
  7. OXYCODONE [Concomitant]
     Dosage: UNK

REACTIONS (1)
  - Anal ulcer [Not Recovered/Not Resolved]
